FAERS Safety Report 10164425 (Version 2)
Quarter: 2014Q2

REPORT INFORMATION
  Report Type: Spontaneous
  Country: US (occurrence: US)
  Receive Date: 20140510
  Receipt Date: 20140510
  Transmission Date: 20141212
  Serious: No
  Sender: FDA-Public Use
  Company Number: US-BRISTOL-MYERS SQUIBB COMPANY-18067793

PATIENT
  Age: 68 Year
  Sex: Female
  Weight: 113.38 kg

DRUGS (2)
  1. BYETTA PEN DISPOSABLE [Suspect]
     Indication: TYPE 2 DIABETES MELLITUS
     Dosage: EXP:JUN15
     Route: 058
  2. EXENATIDE 10MCG PEN, DISPOSABLE DEVICE [Concomitant]

REACTIONS (7)
  - Blood glucose increased [Unknown]
  - Incorrect dose administered [Unknown]
  - Injection site bruising [Unknown]
  - Underdose [Unknown]
  - Blood glucose decreased [Unknown]
  - Rash [Unknown]
  - Chapped lips [Unknown]
